APPROVED DRUG PRODUCT: GEFITINIB
Active Ingredient: GEFITINIB
Strength: 250MG
Dosage Form/Route: TABLET;ORAL
Application: A208913 | Product #001 | TE Code: AB
Applicant: ACTAVIS LABORATORIES FL INC
Approved: Apr 26, 2023 | RLD: No | RS: No | Type: RX